FAERS Safety Report 4403125-X (Version None)
Quarter: 2004Q3

REPORT INFORMATION
  Report Type: 
  Country: None (occurrence: None)
  Receive Date: 20040721
  Receipt Date: 20040512
  Transmission Date: 20050211
  Serious: No
  Sender: FDA-Public Use
  Company Number: US-GLAXOSMITHKLINE-A0510528A

PATIENT
  Age: 57 Year
  Sex: Female

DRUGS (3)
  1. IMITREX [Suspect]
     Indication: MIGRAINE
     Dosage: 50MG TWICE PER DAY
     Route: 048
     Dates: start: 20040214, end: 20040214
  2. DARVOCET [Concomitant]
  3. IMITREX [Concomitant]
     Route: 058

REACTIONS (2)
  - DRUG INEFFECTIVE [None]
  - IMPAIRED WORK ABILITY [None]
